FAERS Safety Report 21395546 (Version 1)
Quarter: 2022Q3

REPORT INFORMATION
  Report Type: Spontaneous
  Country: US (occurrence: None)
  Receive Date: 20220929
  Receipt Date: 20220929
  Transmission Date: 20221027
  Serious: Yes (Hospitalization)
  Sender: FDA-Public Use
  Company Number: None

PATIENT
  Age: 70 Year
  Sex: Female
  Weight: 79 kg

DRUGS (3)
  1. PEMBROLIZUMAB [Suspect]
     Active Substance: PEMBROLIZUMAB
     Indication: Triple negative breast cancer
     Dosage: OTHER FREQUENCY : EVERY 3 WEEKS;?
     Dates: start: 20220511, end: 20220713
  2. CARBOPLATIN [Concomitant]
     Active Substance: CARBOPLATIN
     Dates: start: 20220511, end: 20220713
  3. PACLITAXEL [Concomitant]
     Active Substance: PACLITAXEL
     Dates: start: 20220511, end: 20220713

REACTIONS (9)
  - Nausea [None]
  - Vomiting [None]
  - Dysgeusia [None]
  - Hyponatraemia [None]
  - Asthenia [None]
  - Malnutrition [None]
  - Weight decreased [None]
  - Blood albumin decreased [None]
  - Adrenal insufficiency [None]

NARRATIVE: CASE EVENT DATE: 20220816
